FAERS Safety Report 7122224-5 (Version None)
Quarter: 2010Q4

REPORT INFORMATION
  Report Type: 
  Country: None (occurrence: None)
  Receive Date: 20101124
  Receipt Date: 20101117
  Transmission Date: 20110411
  Serious: Yes (Other)
  Sender: FDA-Public Use
  Company Number: CA-JNJFOC-20101106376

PATIENT
  Sex: Female
  Weight: 75.1 kg

DRUGS (4)
  1. REMICADE [Suspect]
     Indication: HIDRADENITIS
     Route: 042
  2. BIRTH CONTROL PILL [Concomitant]
  3. DICLOFENAC SODIUM [Concomitant]
  4. METHOTREXATE [Concomitant]

REACTIONS (1)
  - OVARIAN OPERATION [None]
